FAERS Safety Report 21205658 (Version 1)
Quarter: 2022Q3

REPORT INFORMATION
  Report Type: Spontaneous
  Country: FR (occurrence: FR)
  Receive Date: 20220812
  Receipt Date: 20220812
  Transmission Date: 20221027
  Serious: Yes (Disabling)
  Sender: FDA-Public Use
  Company Number: None

PATIENT
  Age: 47 Year
  Sex: Female
  Weight: 46 kg

DRUGS (1)
  1. TOCILIZUMAB [Suspect]
     Active Substance: TOCILIZUMAB
     Indication: Takayasu^s arteritis
     Dosage: MOST RECENT DOSE OF TOCILIZUMAB ON 25/MAR/2022.?20 MG/ML CONCENTRATE FOR SOLUTION FOR INFUSION
     Route: 042
     Dates: start: 20210726

REACTIONS (1)
  - Colitis ulcerative [Not Recovered/Not Resolved]

NARRATIVE: CASE EVENT DATE: 20220301
